FAERS Safety Report 6269944-2 (Version None)
Quarter: 2009Q3

REPORT INFORMATION
  Report Type: 
  Country: None (occurrence: None)
  Receive Date: 20090714
  Receipt Date: 20090629
  Transmission Date: 20100115
  Serious: Yes (Other)
  Sender: FDA-Public Use
  Company Number: 001213

PATIENT
  Age: 72 Year
  Sex: Male
  Weight: 70.5 kg

DRUGS (6)
  1. OMEPRAZOLE [Suspect]
     Dosage: (20 MG QD ORAL)
     Route: 048
     Dates: start: 20030101
  2. ALEDRONIC ACID (ALENDRONIC ACID) [Suspect]
     Indication: PROPHYLAXIS
     Dosage: (70 MG 1X/WEEK ORAL)
     Route: 048
     Dates: start: 19700101
  3. ETANERCEPT (ETANERCEPT) [Suspect]
     Indication: RHEUMATOID ARTHRITIS
     Dosage: (50 MG 1X/WEEK SUBCUTANEOUS)
     Route: 058
     Dates: start: 20090120, end: 20090501
  4. NAPROXEN [Suspect]
     Indication: RHEUMATOID ARTHRITIS
     Dosage: (ORAL)
     Route: 048
     Dates: start: 19970101, end: 20090501
  5. PREDNISOLONE [Suspect]
     Indication: RHEUMATOID ARTHRITIS
     Dosage: (7.5 MG QD ORAL)
     Route: 048
     Dates: start: 20051001
  6. ZYLORIC /00003301/ (ZYLORIC) (NOT SPECIFIED) [Suspect]
     Indication: GOUT
     Dosage: (ORAL)
     Route: 048
     Dates: start: 19680101

REACTIONS (2)
  - CONDITION AGGRAVATED [None]
  - DIVERTICULITIS [None]
